FAERS Safety Report 10713540 (Version 1)
Quarter: 2015Q1

REPORT INFORMATION
  Report Type: Spontaneous
  Country: JP (occurrence: JP)
  Receive Date: 20150115
  Receipt Date: 20150115
  Transmission Date: 20150721
  Serious: Yes (Other)
  Sender: FDA-Public Use
  Company Number: JP-MYLANLABS-2015M1000243

PATIENT

DRUGS (3)
  1. ZOLPIDEM TARTRATE TABLETS 5MG ^MYLAN^ [Suspect]
     Active Substance: ZOLPIDEM TARTRATE
     Indication: SCHIZOPHRENIA
     Route: 048
  2. DULOXETINE [Suspect]
     Active Substance: DULOXETINE
     Indication: SCHIZOPHRENIA
     Route: 048
  3. FLUPHENAZINE [Suspect]
     Active Substance: FLUPHENAZINE
     Indication: SCHIZOPHRENIA
     Route: 048

REACTIONS (3)
  - Hyperprolactinaemia [Unknown]
  - Granuloma [Unknown]
  - Mastitis bacterial [Unknown]
